FAERS Safety Report 15464336 (Version 3)
Quarter: 2018Q4

REPORT INFORMATION
  Report Type: Spontaneous
  Country: HU (occurrence: HU)
  Receive Date: 20181004
  Receipt Date: 20181114
  Transmission Date: 20190204
  Serious: Yes (Life-Threatening, Hospitalization)
  Sender: FDA-Public Use
  Company Number: HU-PFIZER INC-2018396343

PATIENT
  Age: 75 Year
  Sex: Male

DRUGS (12)
  1. LYRICA [Suspect]
     Active Substance: PREGABALIN
     Indication: PAIN IN EXTREMITY
     Dosage: 1 DF, DAILY
  2. ASPIRIN [ACETYLSALICYLIC ACID] [Concomitant]
     Active Substance: ASPIRIN
     Dosage: UNK, STARTED YEARS AGO
  3. ROSUTEC [Concomitant]
     Dosage: UNK, STARTED YEARS AGO
  4. TAMSULOZIN [Concomitant]
     Dosage: UNK, STARTED YEARS AGO
  5. ROSUVASTATIN SANDOZ [Concomitant]
     Active Substance: ROSUVASTATIN CALCIUM
     Dosage: UNK, STARTED YEARS AGO
  6. THIOGAMMA [Concomitant]
     Active Substance: THIOCTIC ACID
     Dosage: UNK, STARTED YEARS AGO
  7. LANZOPRAZOL [Concomitant]
     Active Substance: LANSOPRAZOLE
     Dosage: UNK, STARTED YEARS AGO
  8. METFOGAMMA [Concomitant]
     Active Substance: METFORMIN HYDROCHLORIDE
     Dosage: UNK, STARTED YEARS AGO
  9. LYRICA [Suspect]
     Active Substance: PREGABALIN
     Indication: MUSCLE SPASMS
     Dosage: 75 MG, DAILY (DAILY 1 CAPSULE), STARTED 2-3 YEARS AGO
     Dates: end: 201809
  10. DOXILEK [Concomitant]
     Dosage: UNK, STARTED YEARS AGO
  11. GLICLADA [Concomitant]
     Active Substance: GLICLAZIDE
     Dosage: UNK, STARTED YEARS AGO
  12. INSULIN [INSULIN HUMAN] [Concomitant]
     Dosage: UNK, STARTED YEARS AGO

REACTIONS (8)
  - Dyspnoea [Recovered/Resolved]
  - Muscle spasms [Unknown]
  - Intentional product use issue [Unknown]
  - Somnolence [Recovered/Resolved]
  - Condition aggravated [Unknown]
  - Arthralgia [Unknown]
  - Drug ineffective [Not Recovered/Not Resolved]
  - Swollen tongue [Recovered/Resolved]

NARRATIVE: CASE EVENT DATE: 201706
